FAERS Safety Report 4637716-8 (Version None)
Quarter: 2005Q2

REPORT INFORMATION
  Report Type: 
  Country: None (occurrence: None)
  Receive Date: 20050325
  Receipt Date: 20041129
  Transmission Date: 20051028
  Serious: No
  Sender: FDA-Public Use
  Company Number: USA041184698

PATIENT
  Age: 69 Year
  Sex: Female
  Weight: 48 kg

DRUGS (1)
  1. FORTEO [Suspect]
     Indication: OSTEOPOROSIS
     Dosage: 20 UG/1 AT BEDTIME
     Dates: start: 20030501, end: 20041123

REACTIONS (3)
  - DEPRESSION [None]
  - EMOTIONAL DISTRESS [None]
  - HYPERCALCAEMIA [None]
